FAERS Safety Report 21785934 (Version 1)
Quarter: 2022Q4

REPORT INFORMATION
  Report Type: Spontaneous
  Country: SE (occurrence: SE)
  Receive Date: 20221228
  Receipt Date: 20221228
  Transmission Date: 20230113
  Serious: Yes (Life-Threatening, Hospitalization, Other)
  Sender: FDA-Public Use
  Company Number: SE-MLMSERVICE-20221208-3970042-1

PATIENT
  Age: 69 Year
  Sex: Male

DRUGS (17)
  1. OLANZAPINE [Suspect]
     Active Substance: OLANZAPINE
     Indication: Intensive care unit delirium
     Dosage: 10 MILLIGRAM, ONCE A DAY
     Route: 048
  2. OLANZAPINE [Suspect]
     Active Substance: OLANZAPINE
     Dosage: 10 MILLIGRAM, TWO TIMES A DAY
     Route: 048
  3. POLYETHYLENE GLYCOLS [Concomitant]
     Active Substance: POLYETHYLENE GLYCOLS
     Indication: Product used for unknown indication
     Dosage: 13.8 GRAM, ONCE A DAY (8: 00 AM)
     Route: 048
  4. MEROPENEM [Concomitant]
     Active Substance: MEROPENEM
     Indication: Product used for unknown indication
     Dosage: 2 GRAM, 3 TIMES A DAY (8: 00 AM, 4: 00 PM, 12: 00 AM)
     Route: 042
  5. POTASSIUM CITRATE [Concomitant]
     Active Substance: POTASSIUM CITRATE
     Indication: Product used for unknown indication
     Dosage: 30 MILLILITER, 3 TIMES A DAY (8: 00 AM, 4: 00 PM, 12: 00 AM)
     Route: 048
  6. ZOPICLONE [Concomitant]
     Active Substance: ZOPICLONE
     Indication: Product used for unknown indication
     Dosage: 5 MILLIGRAM, ONCE A DAY (10: 00 PM)
     Route: 048
  7. MIRTAZAPINE [Concomitant]
     Active Substance: MIRTAZAPINE
     Indication: Product used for unknown indication
     Dosage: 15 MILLIGRAM, ONCE A DAY (8: 00 PM)
     Route: 048
  8. MICAFUNGIN [Concomitant]
     Active Substance: MICAFUNGIN
     Indication: Product used for unknown indication
     Dosage: 100 MILLIGRAM, ONCE A DAY (8: 00 AM)
     Route: 042
  9. PREGABALIN [Concomitant]
     Active Substance: PREGABALIN
     Indication: Product used for unknown indication
     Dosage: 50 MILLIGRAM, TWO TIMES A DAY ((8: 00 AM, 8: 00 PM))
     Route: 048
  10. IPRATROPIUM [Concomitant]
     Active Substance: IPRATROPIUM
     Indication: Product used for unknown indication
     Dosage: 0.5 MILLIGRAM, 3 TIMES A DAY (8: 00 AM, 4: 00 PM, 12: 00 AM)
  11. ESOMEPRAZOLE [Concomitant]
     Active Substance: ESOMEPRAZOLE
     Indication: Product used for unknown indication
     Dosage: 20 MILLIGRAM, ONCE A DAY (8: 00 PM)
     Route: 048
  12. ALBUTEROL [Concomitant]
     Active Substance: ALBUTEROL
     Indication: Product used for unknown indication
     Dosage: 2.5 MILLIGRAM, 3 TIMES A DAY (8: 00 AM, 4: 00 PM, 12: 00 AM)
  13. DALTEPARIN [Concomitant]
     Active Substance: DALTEPARIN
     Indication: Product used for unknown indication
     Dosage: 5000 INTERNATIONAL UNIT, ONCE A DAY (8: 00 PM)
     Route: 058
  14. NICOTINE [Concomitant]
     Active Substance: NICOTINE
     Indication: Product used for unknown indication
     Dosage: 12 MILLIGRAM, ONCE A DAY
     Route: 062
  15. ACETAMINOPHEN [Concomitant]
     Active Substance: ACETAMINOPHEN
     Indication: Product used for unknown indication
     Dosage: 4 GRAM, ONCE A DAY (1 G AT 8: 00 AM, 12: 00 PM, 6: 00 PM, 2: 00 AM)
     Route: 048
  16. REMIFENTANIL [Concomitant]
     Active Substance: REMIFENTANIL
     Indication: Procedural pain
     Dosage: UNK
     Route: 065
  17. ZOLPIDEM [Concomitant]
     Active Substance: ZOLPIDEM TARTRATE
     Indication: Sedative therapy
     Dosage: 7.5 MILLIGRAM
     Route: 065

REACTIONS (5)
  - Overdose [Recovered/Resolved]
  - Coma [Recovered/Resolved]
  - Toxicity to various agents [Recovered/Resolved]
  - Hypotension [Recovered/Resolved]
  - Miosis [Recovered/Resolved]
